APPROVED DRUG PRODUCT: ERYMAX
Active Ingredient: ERYTHROMYCIN
Strength: 2%
Dosage Form/Route: SOLUTION;TOPICAL
Application: A062508 | Product #002
Applicant: MERZ PHARMACEUTICALS LLC
Approved: Jul 11, 1985 | RLD: No | RS: No | Type: DISCN